FAERS Safety Report 10142365 (Version 2)
Quarter: 2014Q2

REPORT INFORMATION
  Report Type: Spontaneous
  Country: JP (occurrence: JP)
  Receive Date: 20140430
  Receipt Date: 20140430
  Transmission Date: 20141212
  Serious: Yes (Hospitalization, Other)
  Sender: FDA-Public Use
  Company Number: JP-UCBSA-112432

PATIENT
  Age: 85 Year
  Sex: Male

DRUGS (5)
  1. E KEPPRA [Suspect]
     Indication: EPILEPSY
     Dosage: UNKNOWN DOSE
     Route: 048
  2. E KEPPRA [Suspect]
     Indication: EPILEPSY
     Dosage: DRUG STRENGTH: 250 MG
     Route: 048
  3. FLORINEF [Suspect]
     Dosage: UNKNOWN DOSE
     Route: 048
     Dates: end: 201309
  4. LAMOTRIGINE [Suspect]
     Dosage: 25MG WAS ADMINISTERED
     Route: 048
  5. GABAPEN [Concomitant]
     Dosage: DAILY DOSE: 400 MG
     Route: 048

REACTIONS (4)
  - Hyponatraemia [Not Recovered/Not Resolved]
  - Pancytopenia [Not Recovered/Not Resolved]
  - Hypertension [Unknown]
  - Convulsion [Unknown]
